FAERS Safety Report 24571008 (Version 3)
Quarter: 2024Q4

REPORT INFORMATION
  Report Type: Report from Study
  Country: TR (occurrence: TR)
  Receive Date: 20241101
  Receipt Date: 20241201
  Transmission Date: 20250115
  Serious: Yes (Hospitalization)
  Sender: ABBVIE
  Company Number: TR-ABBVIE-5985848

PATIENT
  Age: 63 Year
  Sex: Female
  Weight: 61 kg

DRUGS (5)
  1. CARBIDOPA\LEVODOPA [Suspect]
     Active Substance: CARBIDOPA\LEVODOPA
     Indication: Parkinson^s disease
     Dosage: MORNING DOSE (ML): 6.00 CONTINUOUS DOSE (ML): 3.00 EXTRA DOSE (ML): 1.50
     Route: 050
     Dates: start: 20241017
  2. CARBIDOPA\LEVODOPA [Suspect]
     Active Substance: CARBIDOPA\LEVODOPA
  3. CEDRINA [Concomitant]
     Indication: Dementia
     Dosage: FORM STRENGTH: 25 MILLIGRAM, QUETIAPINE
     Route: 048
     Dates: end: 20141104
  4. COGITO [Concomitant]
     Indication: Dementia
     Dosage: FORM STRENGTH: 20 MILLIGRAM, MEMANTINE
     Route: 048
  5. SEROQUEL [Concomitant]
     Active Substance: QUETIAPINE FUMARATE
     Indication: Dementia
     Dosage: FORM STRENGTH: 300 MILLIGRAM, QUETIAPINE
     Route: 048
     Dates: start: 20241104

REACTIONS (8)
  - Decubitus ulcer [Not Recovered/Not Resolved]
  - Confusional state [Not Recovered/Not Resolved]
  - Pyrexia [Recovered/Resolved]
  - Drug ineffective [Recovered/Resolved]
  - C-reactive protein increased [Recovered/Resolved]
  - Blood sodium increased [Recovered/Resolved]
  - General physical health deterioration [Not Recovered/Not Resolved]
  - Pneumonia [Not Recovered/Not Resolved]

NARRATIVE: CASE EVENT DATE: 20240101
